FAERS Safety Report 4281827-6 (Version None)
Quarter: 2004Q1

REPORT INFORMATION
  Report Type: 
  Country: None (occurrence: None)
  Receive Date: 20040129
  Receipt Date: 20040115
  Transmission Date: 20041129
  Serious: Yes (Hospitalization, Other)
  Sender: FDA-Public Use
  Company Number: 03-00759

PATIENT
  Age: 8 Year
  Sex: Female

DRUGS (2)
  1. LINDANE [Suspect]
     Indication: ACARODERMATITIS
     Dosage: 1%, TOPICAL
     Route: 061
     Dates: start: 20020107, end: 20030203
  2. LINDANE [Suspect]
     Indication: ACARODERMATITIS
     Dosage: 1%, TOPICAL
     Route: 061
     Dates: start: 20020107, end: 20030203

REACTIONS (7)
  - CONVULSION [None]
  - DRUG TOXICITY [None]
  - FORMICATION [None]
  - HAIR GROWTH ABNORMAL [None]
  - LACERATION [None]
  - PAIN IN EXTREMITY [None]
  - VOMITING [None]
